FAERS Safety Report 8204846-3 (Version None)
Quarter: 2012Q1

REPORT INFORMATION
  Report Type: 
  Country: None (occurrence: None)
  Receive Date: 20120313
  Receipt Date: 20120307
  Transmission Date: 20120608
  Serious: Yes (Other)
  Sender: FDA-Public Use
  Company Number: US-FRI-1000027937

PATIENT
  Age: 67 Year
  Sex: Female

DRUGS (5)
  1. SUPPLEMENTS (NOS) [Concomitant]
  2. THYROID TAB [Suspect]
     Dosage: 120 MG
     Dates: start: 20000101
  3. SLEEP AID (NOS) [Concomitant]
     Indication: SLEEP DISORDER
  4. THYROID TAB [Suspect]
     Indication: HYPOTHYROIDISM
     Dates: start: 19820101, end: 20000101
  5. CALCIUM [Concomitant]

REACTIONS (5)
  - BLOOD PRESSURE INCREASED [None]
  - GASTRIC DISORDER [None]
  - BLOOD GLUCOSE INCREASED [None]
  - CHEST DISCOMFORT [None]
  - ANXIETY [None]
